FAERS Safety Report 8534882 (Version 3)
Quarter: 2013Q3

REPORT INFORMATION
  Report Type: Report from Study
  Country: US (occurrence: US)
  Receive Date: 20120427
  Receipt Date: 20130819
  Transmission Date: 20140515
  Serious: Yes (Other)
  Sender: FDA-Public Use
  Company Number: PHEH2012US008536

PATIENT
  Age: 10 Year
  Sex: Male

DRUGS (5)
  1. AFINITOR [Suspect]
     Indication: ASTROCYTOMA, LOW GRADE
     Dosage: 2.5 MG, DAILY
     Route: 048
     Dates: start: 20110929
  2. DEPAKOTE [Concomitant]
  3. AMOXICILLIN [Concomitant]
  4. Z-PAK [Concomitant]
  5. ONFI [Concomitant]
     Indication: CONVULSION

REACTIONS (3)
  - Upper limb fracture [Not Recovered/Not Resolved]
  - Convulsion [Recovered/Resolved]
  - Hypersensitivity [Recovered/Resolved]
